FAERS Safety Report 13584192 (Version 1)
Quarter: 2017Q2

REPORT INFORMATION
  Report Type: Spontaneous
  Country: US (occurrence: US)
  Receive Date: 20170525
  Receipt Date: 20170525
  Transmission Date: 20170830
  Serious: Yes (Death)
  Sender: FDA-Public Use
  Company Number: None

PATIENT
  Age: 46 Year
  Sex: Female

DRUGS (6)
  1. KEPPRA [Concomitant]
     Active Substance: LEVETIRACETAM
  2. KLONOPIN [Concomitant]
     Active Substance: CLONAZEPAM
  3. IRON [Concomitant]
     Active Substance: IRON
  4. PREDNISONE. [Concomitant]
     Active Substance: PREDNISONE
  5. HYDRALAZINE HCL [Concomitant]
     Active Substance: HYDRALAZINE HYDROCHLORIDE
  6. SENSIPAR [Suspect]
     Active Substance: CINACALCET HYDROCHLORIDE
     Indication: NEPHROGENIC ANAEMIA
     Route: 048

REACTIONS (1)
  - Death [None]
